FAERS Safety Report 8394569-2 (Version None)
Quarter: 2012Q2

REPORT INFORMATION
  Report Type: 
  Country: None (occurrence: None)
  Receive Date: 20120525
  Receipt Date: 20120525
  Transmission Date: 20120825
  Serious: Yes (Hospitalization)
  Sender: FDA-Public Use
  Company Number: None

PATIENT
  Sex: Male
  Weight: 66.7 kg

DRUGS (3)
  1. CARBOPLATIN [Suspect]
     Dosage: 488 MG
  2. BEVACIZUMAB (RHUMAB VEGF)(704865) [Suspect]
     Dosage: 969 MG
  3. TAXOL [Suspect]
     Dosage: 352 MG

REACTIONS (3)
  - EPISTAXIS [None]
  - DEHYDRATION [None]
  - HAEMOPTYSIS [None]
